FAERS Safety Report 10128667 (Version 2)
Quarter: 2014Q2

REPORT INFORMATION
  Report Type: Spontaneous
  Country: US (occurrence: US)
  Receive Date: 20140428
  Receipt Date: 20140602
  Transmission Date: 20141212
  Serious: Yes (Other)
  Sender: FDA-Public Use
  Company Number: US-SA-2014SA052236

PATIENT
  Age: 59 Year
  Sex: Female

DRUGS (2)
  1. LANTUS SOLOSTAR [Suspect]
     Indication: TYPE 2 DIABETES MELLITUS
     Dosage: STARTED 4 YR AGO DOSE:30 UNIT(S)
     Route: 065
     Dates: start: 2010
  2. SOLOSTAR [Concomitant]
     Indication: DEVICE THERAPY
     Dates: start: 2010

REACTIONS (4)
  - Joint injury [Not Recovered/Not Resolved]
  - Joint injury [Not Recovered/Not Resolved]
  - Joint injury [Not Recovered/Not Resolved]
  - Fracture [Not Recovered/Not Resolved]
